FAERS Safety Report 7023890-5 (Version None)
Quarter: 2010Q4

REPORT INFORMATION
  Report Type: 
  Country: None (occurrence: None)
  Receive Date: 20101001
  Receipt Date: 20100517
  Transmission Date: 20110411
  Serious: Yes (Other)
  Sender: FDA-Public Use
  Company Number: US-ASTRAZENECA-2009SE16317

PATIENT
  Age: 45 Year
  Sex: Male
  Weight: 105.8 kg

DRUGS (12)
  1. SEROQUEL [Suspect]
     Route: 048
     Dates: start: 20061115
  2. LAMICTAL [Concomitant]
  3. GEODON [Concomitant]
  4. TRILEPTAL [Concomitant]
  5. GLIPIZIDE [Concomitant]
     Indication: DIABETES MELLITUS
  6. HYDROCHLOROTHIAZIDE [Concomitant]
  7. INDERAL LA [Concomitant]
  8. OMEPRAZOLE [Concomitant]
     Indication: ABDOMINAL PAIN UPPER
  9. OMEPRAZOLE [Concomitant]
     Indication: REFLUX GASTRITIS
  10. SYNTHROID [Concomitant]
  11. TEGRETOL-XR [Concomitant]
  12. XANAX [Concomitant]

REACTIONS (3)
  - DIABETES MELLITUS [None]
  - DIABETES MELLITUS INADEQUATE CONTROL [None]
  - ORGANIC ERECTILE DYSFUNCTION [None]
